FAERS Safety Report 5535803-3 (Version None)
Quarter: 2007Q4

REPORT INFORMATION
  Report Type: 
  Country: None (occurrence: None)
  Receive Date: 20071206
  Receipt Date: 20071128
  Transmission Date: 20080405
  Serious: Yes (Hospitalization)
  Sender: FDA-Public Use
  Company Number: A0696287A

PATIENT
  Age: 21 Year
  Sex: Male

DRUGS (5)
  1. RANITIDINE HCL [Suspect]
     Dosage: 10CC TWICE PER DAY
     Route: 048
     Dates: start: 20070901, end: 20070909
  2. UNKNOWN MEDICATION [Concomitant]
  3. NIACINAMIDE [Concomitant]
  4. VASOTEC [Concomitant]
  5. LOPRESSOR [Concomitant]

REACTIONS (3)
  - LETHARGY [None]
  - PNEUMONIA ASPIRATION [None]
  - SOMNOLENCE [None]
